FAERS Safety Report 19025462 (Version 3)
Quarter: 2021Q2

REPORT INFORMATION
  Report Type: Report from Study
  Country: BR (occurrence: BR)
  Receive Date: 20210318
  Receipt Date: 20210518
  Transmission Date: 20210717
  Serious: Yes (Other)
  Sender: FDA-Public Use
  Company Number: BR-TAKEDA-BR202015384

PATIENT
  Age: 9 Year
  Sex: Male
  Weight: 23 kg

DRUGS (12)
  1. CAPTOPRIL. [Concomitant]
     Active Substance: CAPTOPRIL
     Indication: BLOOD PRESSURE FLUCTUATION
  2. PROPRANOLOL [Concomitant]
     Active Substance: PROPRANOLOL HYDROCHLORIDE
     Indication: BLOOD PRESSURE FLUCTUATION
  3. PARACETAMOL [Concomitant]
     Active Substance: ACETAMINOPHEN
     Dosage: 26 GTT DROPS, Q6HR DURING 2 OR 3 DAYS AFTER THE INFUSION
     Route: 050
  4. IDURSULFASE [Suspect]
     Active Substance: IDURSULFASE
     Indication: MUCOPOLYSACCHARIDOSIS II
     Dosage: UNK UNK, 1/WEEK
     Route: 042
  5. IDURSULFASE [Suspect]
     Active Substance: IDURSULFASE
     Dosage: 2 VIALS, 1/WEEK
     Route: 042
  6. CAPTOPRIL. [Concomitant]
     Active Substance: CAPTOPRIL
     Indication: CARDIAC DISORDER
     Dosage: 1.5 MILLILITER, BID
     Route: 065
  7. PROPRANOLOL [Concomitant]
     Active Substance: PROPRANOLOL HYDROCHLORIDE
     Indication: CARDIAC DISORDER
     Dosage: 2.5 MILLIGRAM, BID
     Route: 065
  8. PARACETAMOL [Concomitant]
     Active Substance: ACETAMINOPHEN
     Dosage: 26 GTT DROPS, Q30MIN AFTER THE INFUSION
     Route: 050
  9. HYDROCORTISONE. [Concomitant]
     Active Substance: HYDROCORTISONE
     Indication: HYPERSENSITIVITY
     Dosage: 8 MILLILITER, Q30MIN BEFORE THE INFUSION
     Route: 065
  10. HIXIZINE [Concomitant]
     Active Substance: HYDROXYZINE HYDROCHLORIDE
     Dosage: UNK
     Route: 065
  11. RISPERIDONE. [Concomitant]
     Active Substance: RISPERIDONE
     Indication: RESTLESSNESS
     Dosage: 2 MILLILITER, QD
     Route: 065
  12. PARACETAMOL [Concomitant]
     Active Substance: ACETAMINOPHEN
     Indication: PYREXIA
     Dosage: 26 GTT DROPS, Q30MIN BEFORE THE INFUSION
     Route: 050

REACTIONS (19)
  - Cyanosis [Recovered/Resolved]
  - Arrhythmia [Recovered/Resolved]
  - Asthenia [Unknown]
  - Blood pressure fluctuation [Recovering/Resolving]
  - Pyrexia [Recovered/Resolved]
  - Irritability [Recovered/Resolved]
  - Apnoea [Recovered/Resolved]
  - Product administration interrupted [Unknown]
  - Restlessness [Not Recovered/Not Resolved]
  - Peripheral swelling [Recovered/Resolved]
  - Flatulence [Recovered/Resolved]
  - Ear infection [Recovering/Resolving]
  - Drug hypersensitivity [Recovered/Resolved]
  - Oxygen saturation abnormal [Recovered/Resolved]
  - Product dose omission issue [Unknown]
  - Erythema [Recovering/Resolving]
  - Muscular weakness [Not Recovered/Not Resolved]
  - Unevaluable event [Unknown]
  - Product availability issue [Recovered/Resolved]

NARRATIVE: CASE EVENT DATE: 202009
